FAERS Safety Report 6551154-2 (Version None)
Quarter: 2010Q1

REPORT INFORMATION
  Report Type: 
  Country: None (occurrence: None)
  Receive Date: 20100121
  Receipt Date: 20100112
  Transmission Date: 20100710
  Serious: Yes (Other)
  Sender: FDA-Public Use
  Company Number: FKO201000010

PATIENT
  Age: 47 Year
  Sex: Female

DRUGS (3)
  1. EPIRUBICIN [Suspect]
     Indication: BREAST CANCER
     Dosage: (SIX COURSES)
     Dates: start: 20050105, end: 20050422
  2. TAXOTERE (DOCETAXEL) (DOCETAXEL) [Concomitant]
  3. ENDOXAN (CYCLOPHOSPHAMIDE) (CYCLOPHOSPHAMIDE) [Concomitant]

REACTIONS (1)
  - TUMOUR FLARE [None]
